FAERS Safety Report 9000564 (Version 1)
Quarter: 2012Q4

REPORT INFORMATION
  Report Type: Spontaneous
  Country: GB (occurrence: None)
  Receive Date: 20121221
  Receipt Date: 20121221
  Transmission Date: 20130627
  Serious: Yes (Other)
  Sender: FDA-Public Use
  Company Number: AUR-APL-2012-05386

PATIENT
  Age: 57 Year
  Sex: Male

DRUGS (3)
  1. RIBAVIRIN (RIBAVIRIN) [Suspect]
     Indication: HEPATITIS C
     Route: 048
     Dates: start: 20120528
  2. PEGINTERFERON ALFA-2B (PEGINTERFERON ALFA-2B) [Suspect]
     Indication: HEPATITIS C
     Route: 058
     Dates: start: 20120528
  3. TELAPREVIR (TELAPREVIR) [Suspect]
     Indication: HEPATITIS C
     Dosage: (750 mg,3 in 1 d)
     Route: 048
     Dates: start: 20120528, end: 20120826

REACTIONS (13)
  - Dyspnoea [None]
  - Proctalgia [None]
  - Diarrhoea [None]
  - Fatigue [None]
  - Pain [None]
  - Headache [None]
  - Influenza [None]
  - Nausea [None]
  - Insomnia [None]
  - Dry mouth [None]
  - Pain in extremity [None]
  - Rectal tenesmus [None]
  - Rectal haemorrhage [None]
